FAERS Safety Report 18569995 (Version 2)
Quarter: 2021Q1

REPORT INFORMATION
  Report Type: Spontaneous
  Country: US (occurrence: US)
  Receive Date: 20201202
  Receipt Date: 20210311
  Transmission Date: 20210419
  Serious: No
  Sender: FDA-Public Use
  Company Number: US-DECIPHERA PHARMACEUTICALS LLC-2020-US-000650

PATIENT
  Age: 73 Year
  Sex: Male

DRUGS (1)
  1. QINLOCK [Suspect]
     Active Substance: RIPRETINIB
     Indication: GASTROINTESTINAL STROMAL TUMOUR
     Dosage: 150 MILLIGRAM, QD
     Route: 048
     Dates: start: 20201023, end: 202012

REACTIONS (5)
  - Groin pain [Unknown]
  - Alopecia [Unknown]
  - Arthralgia [Unknown]
  - Disease progression [Unknown]
  - Skin papilloma [Unknown]

NARRATIVE: CASE EVENT DATE: 202012
